FAERS Safety Report 18240646 (Version 1)
Quarter: 2020Q3

REPORT INFORMATION
  Report Type: Spontaneous
  Country: FR (occurrence: FR)
  Receive Date: 20200908
  Receipt Date: 20200908
  Transmission Date: 20201103
  Serious: Yes (Hospitalization)
  Sender: FDA-Public Use
  Company Number: FR-TEVA-2020-FR-1823361

PATIENT
  Age: 92 Year
  Sex: Female
  Weight: 80 kg

DRUGS (16)
  1. AMOXICILLINE [Concomitant]
     Active Substance: AMOXICILLIN
  2. LACTULOSE. [Concomitant]
     Active Substance: LACTULOSE
  3. FLUINDIONE [Concomitant]
     Active Substance: FLUINDIONE
  4. VERAPAMIL (CHLORHYDRATE DE) [Concomitant]
     Active Substance: VERAPAMIL HYDROCHLORIDE
  5. FUROSEMIDE. [Concomitant]
     Active Substance: FUROSEMIDE
  6. PARACETAMOL [Concomitant]
     Active Substance: ACETAMINOPHEN
  7. KEPPRA [Concomitant]
     Active Substance: LEVETIRACETAM
  8. SPIRONOLACTONE. [Suspect]
     Active Substance: SPIRONOLACTONE
     Indication: HYPERTENSION
     Dosage: 25 MG
     Route: 048
     Dates: start: 20200613, end: 20200615
  9. CALCIPARINE [Concomitant]
     Active Substance: HEPARIN CALCIUM
  10. ACIDE CLAVULANIQUE [Concomitant]
     Active Substance: CLAVULANIC ACID
  11. VITABACT [Concomitant]
     Active Substance: PICLOXYDINE DIHYDROCHLORIDE
  12. ZOPICLONE [Concomitant]
     Active Substance: ZOPICLONE
  13. AMITRIPTYLINE [Suspect]
     Active Substance: AMITRIPTYLINE
     Indication: NEURALGIA
     Dosage: 25 MG
     Route: 042
     Dates: start: 20200611, end: 20200615
  14. ACICLOVIR [Suspect]
     Active Substance: ACYCLOVIR
     Indication: MENINGOENCEPHALITIS VIRAL
     Dosage: 2700 MG
     Route: 041
     Dates: start: 20200609, end: 20200615
  15. LANSOPRAZOLE. [Concomitant]
     Active Substance: LANSOPRAZOLE
  16. CODEINE [Concomitant]
     Active Substance: CODEINE

REACTIONS (1)
  - Acute kidney injury [Recovered/Resolved]

NARRATIVE: CASE EVENT DATE: 20200614
